FAERS Safety Report 8257287 (Version 2)
Quarter: 2014Q1

REPORT INFORMATION
  Report Type: Spontaneous
  Country: US (occurrence: None)
  Receive Date: 20111114
  Receipt Date: 20140310
  Transmission Date: 20141002
  Serious: Yes (Hospitalization)
  Sender: FDA-Public Use
  Company Number: 125876

PATIENT
  Age: 59 Year
  Sex: Female
  Weight: 155 kg

DRUGS (1)
  1. ETOPOSIDE [Suspect]
     Indication: NON-SMALL CELL LUNG CANCER STAGE III
     Dosage: 90MG/IV
     Route: 042
     Dates: start: 20110919, end: 20111017

REACTIONS (4)
  - Pulmonary embolism [None]
  - Hypophagia [None]
  - Anaemia [None]
  - Radiation pneumonitis [None]
